FAERS Safety Report 5889191-3 (Version None)
Quarter: 2008Q3

REPORT INFORMATION
  Report Type: 
  Country: None (occurrence: None)
  Receive Date: 20080917
  Receipt Date: 20080902
  Transmission Date: 20090109
  Serious: Yes (Other)
  Sender: FDA-Public Use
  Company Number: GXKR2008US08365

PATIENT
  Age: 67 Year
  Sex: Female

DRUGS (4)
  1. TRIAMCINOLONE [Suspect]
     Indication: PAIN MANAGEMENT
     Dosage: 80 MG, ONCE/SINGLE, EPIDURAL
     Route: 008
  2. MIDAZOLAM HCL [Concomitant]
  3. FENTANYL-100 [Concomitant]
  4. BUPIVACAINE [Concomitant]

REACTIONS (6)
  - ALTERED STATE OF CONSCIOUSNESS [None]
  - APHASIA [None]
  - BLEPHAROSPASM [None]
  - CENTRAL NERVOUS SYSTEM LESION [None]
  - EYE ROLLING [None]
  - LUNG ADENOCARCINOMA [None]
